FAERS Safety Report 5097397-9 (Version None)
Quarter: 2006Q3

REPORT INFORMATION
  Report Type: 
  Country: None (occurrence: None)
  Receive Date: 20060906
  Receipt Date: 20060711
  Transmission Date: 20061208
  Serious: Yes (Hospitalization, Disabling)
  Sender: FDA-Public Use
  Company Number: 2006PK01528

PATIENT
  Age: 47 Month
  Sex: Male
  Weight: 19 kg

DRUGS (2)
  1. EMLA [Suspect]
     Indication: ANAESTHESIA
     Route: 061
     Dates: start: 20060704
  2. EMLA [Suspect]
     Indication: WOUND COMPLICATION
     Route: 061
     Dates: start: 20060704

REACTIONS (5)
  - DRUG TOXICITY [None]
  - HYPERSENSITIVITY [None]
  - INFECTION [None]
  - PSYCHOTIC DISORDER [None]
  - URINARY RETENTION [None]
